FAERS Safety Report 9800433 (Version 1)
Quarter: 2014Q1

REPORT INFORMATION
  Report Type: Spontaneous
  Country: TW (occurrence: TW)
  Receive Date: 20140107
  Receipt Date: 20140107
  Transmission Date: 20141002
  Serious: Yes (Other)
  Sender: FDA-Public Use
  Company Number: TW-JNJFOC-20131216577

PATIENT
  Sex: 0

DRUGS (5)
  1. ACETAMINOPHEN [Suspect]
     Route: 065
  2. ACETAMINOPHEN [Suspect]
     Indication: ANALGESIC THERAPY
     Route: 065
  3. ASPIRIN [Suspect]
     Indication: ANALGESIC THERAPY
     Route: 065
  4. NSAIDS [Suspect]
     Indication: ANALGESIC THERAPY
     Route: 065
  5. ROFECOXIB [Suspect]
     Indication: ANALGESIC THERAPY
     Route: 065

REACTIONS (1)
  - Renal failure chronic [Unknown]
